FAERS Safety Report 7435172-8 (Version None)
Quarter: 2011Q2

REPORT INFORMATION
  Report Type: 
  Country: None (occurrence: None)
  Receive Date: 20110425
  Receipt Date: 20110421
  Transmission Date: 20111010
  Serious: Yes (Death, Hospitalization, Other)
  Sender: FDA-Public Use
  Company Number: PHHY2011FR33733

PATIENT
  Sex: Male

DRUGS (5)
  1. ZOMETA [Suspect]
     Dosage: 4 MG, UNK
     Dates: start: 20110318
  2. DURAGESIC-100 [Concomitant]
     Dosage: 100 UG/HR, UNK
  3. LYRICA [Concomitant]
     Dosage: 50 MG, DAILY
  4. SUTENT [Concomitant]
     Dosage: 50 MG, DAILYFOR A SIX-WEEK-CYCLE,
     Dates: start: 20100914
  5. FENTANYL [Concomitant]
     Dosage: ONE PATCH EVERY 72H

REACTIONS (4)
  - VISION BLURRED [None]
  - DELIRIUM [None]
  - CEREBRAL HAEMORRHAGE [None]
  - BALANCE DISORDER [None]
